FAERS Safety Report 7030518-7 (Version None)
Quarter: 2010Q4

REPORT INFORMATION
  Report Type: 
  Country: None (occurrence: None)
  Receive Date: 20101006
  Receipt Date: 20100929
  Transmission Date: 20110411
  Serious: Yes (Hospitalization)
  Sender: FDA-Public Use
  Company Number: US-ROCHE-717457

PATIENT
  Sex: Male
  Weight: 88 kg

DRUGS (22)
  1. BEVACIZUMAB [Suspect]
     Route: 042
     Dates: start: 20100316, end: 20100629
  2. DOCETAXEL [Suspect]
     Route: 042
     Dates: start: 20100316, end: 20100817
  3. CISPLATIN [Suspect]
     Route: 042
     Dates: start: 20100316, end: 20100817
  4. IRINOTECAN HCL [Suspect]
     Route: 042
     Dates: start: 20100316, end: 20100817
  5. ASPIRIN [Concomitant]
  6. COMPAZINE [Concomitant]
  7. COUMADIN [Concomitant]
  8. OXYCODONE HCL AND ACETAMINOPHEN [Concomitant]
  9. DICYCLOMINE [Concomitant]
  10. LORTAB [Concomitant]
  11. NEXIUM [Concomitant]
  12. ARIXTRA [Concomitant]
  13. BENTYL [Concomitant]
  14. DEXAMETHASONE [Concomitant]
  15. EMEND [Concomitant]
  16. PERCOCET [Concomitant]
  17. PHENERGAN [Concomitant]
  18. REGLAN [Concomitant]
  19. ZOFRAN [Concomitant]
  20. ALOXI [Concomitant]
  21. LORAZEPAM [Concomitant]
  22. ZANTAC [Concomitant]

REACTIONS (5)
  - APPENDICITIS [None]
  - DYSPNOEA [None]
  - MALIGNANT PLEURAL EFFUSION [None]
  - OESOPHAGEAL ULCER [None]
  - VOMITING [None]
